FAERS Safety Report 7137535-7 (Version None)
Quarter: 2010Q4

REPORT INFORMATION
  Report Type: 
  Country: None (occurrence: None)
  Receive Date: 20101206
  Receipt Date: 20101129
  Transmission Date: 20110411
  Serious: Yes (Death, Life-Threatening)
  Sender: FDA-Public Use
  Company Number: JP-BRISTOL-MYERS SQUIBB COMPANY-15293038

PATIENT
  Age: 48 Year
  Sex: Female
  Weight: 41 kg

DRUGS (4)
  1. CETUXIMAB [Suspect]
     Indication: GASTROOESOPHAGEAL CANCER
     Dosage: IN TOTAL 22 ADMINISTRATION IN 19MAY10(RECENT INF)
     Route: 042
     Dates: start: 20091217
  2. CISPLATIN [Suspect]
     Indication: GASTROOESOPHAGEAL CANCER
     Dosage: RECENT INF:15APR2010
     Route: 042
     Dates: start: 20091217
  3. XELODA [Suspect]
     Indication: GASTROOESOPHAGEAL CANCER
     Dosage: ON DAY 1-15 LAST DOSE:750MG/M2 STOP DATE:25JUN2010 FORM: TAB RECENT INF:26MAY2010
     Route: 048
     Dates: start: 20091217
  4. PACLITAXEL [Concomitant]
     Dosage: ALSO ON 15JUN10 AND 22JUN10
     Dates: start: 20100608

REACTIONS (1)
  - SEPSIS [None]
